FAERS Safety Report 9202358 (Version 1)
Quarter: 2013Q2

REPORT INFORMATION
  Report Type: Spontaneous
  Country: JP (occurrence: JP)
  Receive Date: 20130401
  Receipt Date: 20130401
  Transmission Date: 20140414
  Serious: Yes (Hospitalization)
  Sender: FDA-Public Use
  Company Number: JP-ELI_LILLY_AND_COMPANY-JP201303007563

PATIENT
  Sex: Female

DRUGS (1)
  1. EVISTA [Suspect]
     Route: 048

REACTIONS (2)
  - Cardiac failure congestive [Unknown]
  - Off label use [Unknown]
